FAERS Safety Report 10272692 (Version 1)
Quarter: 2014Q2

REPORT INFORMATION
  Report Type: Spontaneous
  Country: US (occurrence: None)
  Receive Date: 20140630
  Receipt Date: 20140630
  Transmission Date: 20141212
  Serious: Yes (Disabling)
  Sender: FDA-Public Use
  Company Number: None

PATIENT
  Age: 18 Month
  Sex: Female
  Weight: 11.34 kg

DRUGS (2)
  1. HYLANDS TEETHING TABLETS [Suspect]
     Indication: TEETHING
     Dosage: 2-3 TABLETS, FOUR TIMES DAILY, TAKEN UNDER THE TONGUE
     Dates: start: 20140605, end: 20140623
  2. HYLANDS TEETHING TABLETS [Suspect]
     Indication: GINGIVAL PAIN
     Dosage: 2-3 TABLETS, FOUR TIMES DAILY, TAKEN UNDER THE TONGUE
     Dates: start: 20140605, end: 20140623

REACTIONS (2)
  - Rash generalised [None]
  - Respiratory disorder [None]
